FAERS Safety Report 24976763 (Version 2)
Quarter: 2025Q1

REPORT INFORMATION
  Report Type: Report from Study
  Country: CA (occurrence: CA)
  Receive Date: 20250217
  Receipt Date: 20250309
  Transmission Date: 20250409
  Serious: Yes (Other)
  Sender: ABBVIE
  Company Number: CA-ABBVIE-6134864

PATIENT
  Age: 65 Year
  Sex: Male

DRUGS (1)
  1. LUPRON [Suspect]
     Active Substance: LEUPROLIDE ACETATE
     Indication: Prostate cancer
     Dosage: FORM STRENGTH : 30 MG, PRE-FILLED SYRINGE
     Route: 030
     Dates: start: 20201012

REACTIONS (2)
  - Abdominal operation [Unknown]
  - Osteoporosis [Unknown]

NARRATIVE: CASE EVENT DATE: 20230101
